FAERS Safety Report 4958665-1 (Version None)
Quarter: 2006Q1

REPORT INFORMATION
  Report Type: 
  Country: None (occurrence: None)
  Receive Date: 20060330
  Receipt Date: 20060327
  Transmission Date: 20060701
  Serious: Yes (Hospitalization, Other)
  Sender: FDA-Public Use
  Company Number: US-MERCK-0603USA04152

PATIENT
  Sex: Male
  Weight: 75 kg

DRUGS (19)
  1. NITROGLYCERIN [Concomitant]
     Route: 065
  2. LISINOPRIL [Concomitant]
     Route: 065
  3. AMOXICILLIN [Concomitant]
     Route: 065
  4. ALBUTEROL [Concomitant]
     Route: 055
  5. COREG [Concomitant]
     Route: 065
  6. COREG [Concomitant]
     Route: 065
  7. DALALONE [Concomitant]
     Route: 065
  8. KENALOG [Concomitant]
     Route: 065
  9. VIOXX [Suspect]
     Indication: ARTHRITIS
     Route: 048
     Dates: start: 19991221, end: 20040826
  10. COUMADIN [Concomitant]
     Route: 065
     Dates: start: 19800101
  11. VERAPAMIL [Concomitant]
     Route: 065
  12. PREDNISONE [Concomitant]
     Route: 065
  13. PREDNISONE [Concomitant]
     Route: 065
  14. LANOXIN [Concomitant]
     Route: 065
  15. ZOCOR [Concomitant]
     Route: 065
  16. ASPIRIN [Concomitant]
     Route: 065
  17. LORTAB [Concomitant]
     Route: 065
  18. DIGOXIN [Concomitant]
     Route: 065
  19. LOVENOX [Concomitant]
     Route: 065

REACTIONS (9)
  - ASTHENIA [None]
  - ATRIAL FIBRILLATION [None]
  - CARDIAC ANEURYSM [None]
  - CARDIAC FAILURE CONGESTIVE [None]
  - CORONARY ARTERY DISEASE [None]
  - MYOCARDIAL INFARCTION [None]
  - POSTOPERATIVE WOUND INFECTION [None]
  - TACHYCARDIA [None]
  - THROMBOSIS [None]
